FAERS Safety Report 7253221-7 (Version None)
Quarter: 2011Q1

REPORT INFORMATION
  Report Type: 
  Country: None (occurrence: None)
  Receive Date: 20110129
  Receipt Date: 20100216
  Transmission Date: 20110831
  Serious: No
  Sender: FDA-Public Use
  Company Number: US-ABBOTT-10P-163-0626904-00

PATIENT
  Sex: Male
  Weight: 84.444 kg

DRUGS (2)
  1. HUMIRA [Suspect]
     Route: 058
     Dates: start: 20100101
  2. HUMIRA [Suspect]
     Indication: CROHN'S DISEASE
     Route: 058
     Dates: start: 20090102, end: 20100101

REACTIONS (5)
  - DECREASED APPETITE [None]
  - COUGH [None]
  - CROHN'S DISEASE [None]
  - HEADACHE [None]
  - WEIGHT DECREASED [None]
